FAERS Safety Report 25902989 (Version 1)
Quarter: 2025Q4

REPORT INFORMATION
  Report Type: Spontaneous
  Country: MX (occurrence: MX)
  Receive Date: 20251009
  Receipt Date: 20251009
  Transmission Date: 20260119
  Serious: Yes (Other)
  Sender: NOVARTIS
  Company Number: MX-002147023-NVSC2025MX128743

PATIENT
  Age: 18 Year
  Sex: Female

DRUGS (3)
  1. FINGOLIMOD [Suspect]
     Active Substance: FINGOLIMOD
     Indication: Multiple sclerosis
     Dosage: UNK
     Route: 065
  2. FINGOLIMOD [Suspect]
     Active Substance: FINGOLIMOD
     Dosage: 0.5 MG, QD (1 OF 0.5 MG)
     Route: 048
     Dates: start: 2021
  3. PREGABALIN [Concomitant]
     Active Substance: PREGABALIN
     Indication: Multiple sclerosis
     Dosage: 75 MG, QD (1 OF 75 MG)
     Route: 048

REACTIONS (3)
  - Palmoplantar keratoderma [Not Recovered/Not Resolved]
  - Pain [Not Recovered/Not Resolved]
  - Skin odour abnormal [Not Recovered/Not Resolved]

NARRATIVE: CASE EVENT DATE: 20250101
